FAERS Safety Report 7403862-9 (Version None)
Quarter: 2011Q2

REPORT INFORMATION
  Report Type: 
  Country: None (occurrence: None)
  Receive Date: 20110408
  Receipt Date: 20110329
  Transmission Date: 20111010
  Serious: Yes (Hospitalization)
  Sender: FDA-Public Use
  Company Number: US-PFIZER INC-2011070485

PATIENT
  Sex: Female

DRUGS (14)
  1. PROTONIX [Concomitant]
     Dosage: UNK
     Dates: start: 20060101
  2. FENTANYL [Concomitant]
     Dosage: UNK
     Dates: start: 20091101
  3. ZOFRAN [Concomitant]
     Dosage: UNK
     Dates: start: 20100629
  4. SCOPOLAMINE [Concomitant]
     Dosage: UNK
     Dates: start: 20091101
  5. DEXAMETHASONE [Concomitant]
     Dosage: UNK
     Dates: start: 20100706
  6. PROCHLORPERAZINE MALEATE [Concomitant]
     Dosage: UNK
     Dates: start: 20100624
  7. COLACE [Concomitant]
     Dosage: UNK
     Dates: start: 20091101
  8. METHADONE [Concomitant]
     Dosage: UNK
     Dates: start: 20100625
  9. INVESTIGATIONAL DRUG [Suspect]
     Dosage: 10 MG/KG, UNK
     Route: 042
     Dates: start: 20100427, end: 20100608
  10. ASPIRIN [Concomitant]
     Dosage: UNK
     Dates: start: 20080101
  11. TOPROL-XL [Concomitant]
     Dosage: UNK
     Dates: start: 20080101
  12. SENNA [Concomitant]
     Dosage: UNK
     Dates: start: 20100525
  13. METHYLNALTREXONE BROMIDE [Suspect]
     Dosage: UNK
     Dates: start: 20100720
  14. OXYMORPHONE [Concomitant]
     Dosage: UNK
     Dates: start: 20100401

REACTIONS (7)
  - VOMITING [None]
  - NAUSEA [None]
  - RETROPERITONEAL LYMPHADENOPATHY [None]
  - PLEURAL EFFUSION [None]
  - DYSPNOEA [None]
  - COLITIS [None]
  - ABDOMINAL PAIN [None]
